FAERS Safety Report 5224175-X (Version None)
Quarter: 2007Q1

REPORT INFORMATION
  Report Type: 
  Country: None (occurrence: None)
  Receive Date: 20070126
  Receipt Date: 20070112
  Transmission Date: 20070707
  Serious: Yes (Other)
  Sender: FDA-Public Use
  Company Number: 2007000148

PATIENT
  Age: 86 Year
  Sex: Female

DRUGS (4)
  1. MACUGEN [Suspect]
     Dosage: INTRA-VITREAL
     Dates: start: 20061215
  2. ASPIRIN [Concomitant]
  3. CHOLESTEROL/TRIGLYCERIDE REDUCER [Concomitant]
  4. ANTIHYPERTENSIVE [Concomitant]

REACTIONS (1)
  - RETINAL ARTERY OCCLUSION [None]
